FAERS Safety Report 9477146 (Version 3)
Quarter: 2013Q4

REPORT INFORMATION
  Report Type: Spontaneous
  Country: US (occurrence: US)
  Receive Date: 20130826
  Receipt Date: 20131007
  Transmission Date: 20140711
  Serious: Yes (Death)
  Sender: FDA-Public Use
  Company Number: US-PFIZER INC-2013241978

PATIENT
  Age: 75 Year
  Sex: Female

DRUGS (1)
  1. INLYTA [Suspect]
     Indication: RENAL CANCER
     Dosage: 5 MG, 2X/DAY
     Route: 048
     Dates: start: 20130802

REACTIONS (5)
  - Disease progression [Fatal]
  - Renal cancer [Fatal]
  - Decreased appetite [Unknown]
  - Fatigue [Unknown]
  - Gastroenteritis viral [Unknown]
